FAERS Safety Report 13701683 (Version 2)
Quarter: 2017Q3

REPORT INFORMATION
  Report Type: Spontaneous
  Country: FR (occurrence: FR)
  Receive Date: 20170629
  Receipt Date: 20170906
  Transmission Date: 20171127
  Serious: Yes (Other)
  Sender: FDA-Public Use
  Company Number: FR-BAYER-2017-123568

PATIENT
  Age: 25 Year
  Sex: Female

DRUGS (1)
  1. MIRENA [Suspect]
     Active Substance: LEVONORGESTREL
     Indication: CHEMICAL CONTRACEPTION
     Dosage: 20 MCG/24HR, CONT
     Route: 014
     Dates: start: 2012

REACTIONS (9)
  - Dizziness [Not Recovered/Not Resolved]
  - Loss of libido [Not Recovered/Not Resolved]
  - Back pain [Not Recovered/Not Resolved]
  - Adnexa uteri pain [Not Recovered/Not Resolved]
  - Alopecia [Not Recovered/Not Resolved]
  - Depression [Not Recovered/Not Resolved]
  - Abdominal distension [Not Recovered/Not Resolved]
  - Nausea [Not Recovered/Not Resolved]
  - Weight gain poor [Not Recovered/Not Resolved]

NARRATIVE: CASE EVENT DATE: 2012
